FAERS Safety Report 22299512 (Version 1)
Quarter: 2023Q2

REPORT INFORMATION
  Report Type: Spontaneous
  Country: US (occurrence: None)
  Receive Date: 20230508
  Receipt Date: 20230508
  Transmission Date: 20230721
  Serious: No
  Sender: FDA-Public Use
  Company Number: None

PATIENT
  Age: 58 Year
  Sex: Female
  Weight: 117.45 kg

DRUGS (11)
  1. COMBIPATCH (ESTRADIOL/NORETHINDRONE ACETATE TRANSDERMAL SYSTEM) [Suspect]
     Active Substance: ESTRADIOL\NORETHINDRONE ACETATE
     Indication: Hormone replacement therapy
     Dosage: OTHER QUANTITY : 8 PATCH(ES);?OTHER FREQUENCY : TWICE WEEKLY;?
     Route: 062
     Dates: start: 20230225, end: 20230321
  2. OZEMPIC [Concomitant]
     Active Substance: SEMAGLUTIDE
  3. COMBIPATCH [Concomitant]
  4. METFORMIN [Concomitant]
  5. dessicated thyroid [Concomitant]
  6. HYDROCHLOROTHIAZIDE [Concomitant]
     Active Substance: HYDROCHLOROTHIAZIDE
  7. CYANOCOBALAMIN\DEXPANTHENOL\NIACINAMIDE\PYRIDOXINE HYDROCHLORIDE\RIBOF [Concomitant]
     Active Substance: CYANOCOBALAMIN\DEXPANTHENOL\NIACINAMIDE\PYRIDOXINE HYDROCHLORIDE\RIBOFLAVIN 5^-PHOSPHATE SODIUM\THIA
  8. GINKGO [Concomitant]
     Active Substance: GINKGO
  9. ASIAN GINSENG [Concomitant]
     Active Substance: ASIAN GINSENG
  10. ALLEGRA [Concomitant]
     Active Substance: FEXOFENADINE HYDROCHLORIDE
  11. ADVIL [Concomitant]
     Active Substance: IBUPROFEN

REACTIONS (7)
  - Product adhesion issue [None]
  - Product formulation issue [None]
  - Application site pruritus [None]
  - Application site erythema [None]
  - Application site reaction [None]
  - Urticaria [None]
  - Dry skin [None]

NARRATIVE: CASE EVENT DATE: 20230225
